FAERS Safety Report 16729938 (Version 1)
Quarter: 2019Q3

REPORT INFORMATION
  Report Type: Spontaneous
  Country: CA (occurrence: CA)
  Receive Date: 20190822
  Receipt Date: 20190822
  Transmission Date: 20191005
  Serious: Yes (Other)
  Sender: FDA-Public Use
  Company Number: CA-MYLANLABS-2019M1077783

PATIENT
  Age: 81 Year
  Sex: Female
  Weight: 64 kg

DRUGS (1)
  1. MYLAN-PANTOPRAZOLE T [Suspect]
     Active Substance: PANTOPRAZOLE
     Indication: GASTROOESOPHAGEAL REFLUX DISEASE
     Dosage: 40 MILLIGRAM, BID
     Route: 048

REACTIONS (4)
  - Secretion discharge [Recovering/Resolving]
  - Vomiting [Recovering/Resolving]
  - Cough [Recovering/Resolving]
  - Retching [Recovering/Resolving]
